FAERS Safety Report 9879671 (Version 2)
Quarter: 2014Q1

REPORT INFORMATION
  Report Type: Report from Study
  Country: AU (occurrence: AU)
  Receive Date: 20140206
  Receipt Date: 20140206
  Transmission Date: 20141002
  Serious: Yes (Disabling)
  Sender: FDA-Public Use
  Company Number: PHHY2014AU003276

PATIENT
  Age: 80 Year
  Sex: Female

DRUGS (2)
  1. ACLASTA [Suspect]
     Dosage: 5 MG
     Route: 042
  2. ACLASTA [Suspect]
     Dosage: 5 MG,
     Route: 042
     Dates: start: 20140107

REACTIONS (17)
  - Spinal pain [Not Recovered/Not Resolved]
  - Chest pain [Not Recovered/Not Resolved]
  - Pain [Not Recovered/Not Resolved]
  - Back pain [Not Recovered/Not Resolved]
  - Pain in extremity [Not Recovered/Not Resolved]
  - Dysstasia [Recovered/Resolved with Sequelae]
  - Platelet count decreased [Unknown]
  - C-reactive protein increased [Unknown]
  - Blood sodium decreased [Unknown]
  - Blood alkaline phosphatase increased [Unknown]
  - Gamma-glutamyltransferase increased [Unknown]
  - Blood triglycerides increased [Unknown]
  - Blood iron decreased [Unknown]
  - Blood thyroid stimulating hormone increased [Unknown]
  - Blood creatinine increased [Unknown]
  - Glomerular filtration rate decreased [Unknown]
  - Constipation [Recovered/Resolved]
